FAERS Safety Report 12397853 (Version 1)
Quarter: 2016Q2

REPORT INFORMATION
  Report Type: Spontaneous
  Country: US (occurrence: None)
  Receive Date: 20160523
  Receipt Date: 20160523
  Transmission Date: 20160815
  Serious: No
  Sender: FDA-Public Use
  Company Number: None

PATIENT
  Age: 42 Year
  Sex: Female

DRUGS (8)
  1. MYCOPHENOLATE [Concomitant]
     Active Substance: MYCOPHENOLIC ACID
  2. METOPROLOL TARTRATE. [Concomitant]
     Active Substance: METOPROLOL TARTRATE
  3. CASPOFUNGIN [Concomitant]
     Active Substance: CASPOFUNGIN
  4. FILGRASTIM [Concomitant]
     Active Substance: FILGRASTIM
  5. ONDANSETRON [Concomitant]
     Active Substance: ONDANSETRON
  6. VANCOMYCIN [Concomitant]
     Active Substance: VANCOMYCIN
  7. PREDNISONE. [Suspect]
     Active Substance: PREDNISONE
     Route: 048
     Dates: start: 20160323
  8. TACROLIMUS. [Concomitant]
     Active Substance: TACROLIMUS

REACTIONS (1)
  - Insomnia [None]

NARRATIVE: CASE EVENT DATE: 20160323
